FAERS Safety Report 22174033 (Version 2)
Quarter: 2023Q2

REPORT INFORMATION
  Report Type: Spontaneous
  Country: US (occurrence: US)
  Receive Date: 20230405
  Receipt Date: 20230504
  Transmission Date: 20230721
  Serious: No
  Sender: FDA-Public Use
  Company Number: US-Santen Inc-2023-USA-002356

PATIENT
  Sex: Female

DRUGS (2)
  1. TOBRADEX ST [Suspect]
     Active Substance: DEXAMETHASONE\TOBRAMYCIN
     Indication: Eye infection
     Dosage: 1 DROP TO BOTH EYES
     Route: 047
     Dates: start: 202212
  2. TOBRADEX ST [Suspect]
     Active Substance: DEXAMETHASONE\TOBRAMYCIN
     Dosage: 1 DROP TO BOTH EYES
     Route: 047
     Dates: start: 20230319

REACTIONS (6)
  - Eye pain [Unknown]
  - Product delivery mechanism issue [Unknown]
  - Product contamination [Unknown]
  - Product dispensing error [Unknown]
  - Product use complaint [Unknown]
  - Wrong technique in product usage process [Unknown]

NARRATIVE: CASE EVENT DATE: 20230320
